FAERS Safety Report 6283533-5 (Version None)
Quarter: 2009Q3

REPORT INFORMATION
  Report Type: 
  Country: None (occurrence: None)
  Receive Date: 20090721
  Receipt Date: 20090721
  Transmission Date: 20100115
  Serious: Yes (Death)
  Sender: FDA-Public Use
  Company Number: None

PATIENT
  Age: 63 Year
  Sex: Male
  Weight: 56.246 kg

DRUGS (4)
  1. SUTENT [Suspect]
     Indication: OESOPHAGEAL CARCINOMA
     Dosage: 37.5 MG DAILY P.O.
     Route: 048
     Dates: start: 20090608, end: 20090704
  2. SUTENT [Suspect]
  3. PROTONIX [Concomitant]
  4. DILAUDID [Concomitant]

REACTIONS (3)
  - FATIGUE [None]
  - GASTRIC DISORDER [None]
  - PERFORMANCE STATUS DECREASED [None]
